FAERS Safety Report 16242450 (Version 1)
Quarter: 2019Q2

REPORT INFORMATION
  Report Type: Other
  Country: AT (occurrence: AT)
  Receive Date: 20190426
  Receipt Date: 20190426
  Transmission Date: 20190711
  Serious: Yes (Hospitalization, Other)
  Sender: FDA-Public Use
  Company Number: AT-CELLTRION INC.-2019AT020647

PATIENT

DRUGS (12)
  1. CORTISON [Suspect]
     Active Substance: CORTISONE ACETATE
     Indication: DIFFUSE LARGE B-CELL LYMPHOMA REFRACTORY
     Dosage: UNK
     Route: 065
     Dates: start: 20190329
  2. SELINEXOR [Concomitant]
     Active Substance: SELINEXOR
     Dosage: UNK
     Route: 065
     Dates: start: 201802
  3. VINCRISTINE [Concomitant]
     Active Substance: VINCRISTINE
     Dosage: 6 CYCLES
     Route: 065
     Dates: start: 201808
  4. RITUXIMAB (UNKNOWN) [Suspect]
     Active Substance: RITUXIMAB
     Indication: DIFFUSE LARGE B-CELL LYMPHOMA REFRACTORY
     Dosage: UNK, SOLUTION FOR INFUSION
     Route: 042
     Dates: start: 201411
  5. CYCLOPHOSPHAMIDE. [Concomitant]
     Active Substance: CYCLOPHOSPHAMIDE
     Dosage: 6 CYCLES
     Route: 065
     Dates: start: 201808
  6. CARBOPLATIN. [Concomitant]
     Active Substance: CARBOPLATIN
     Dosage: UNK
  7. RITUXIMAB (UNKNOWN) [Suspect]
     Active Substance: RITUXIMAB
     Dosage: UNK, SOLUTION FOR INFUSION
     Route: 042
     Dates: start: 20190329
  8. PREDNISONE. [Concomitant]
     Active Substance: PREDNISONE
     Dosage: 6 CYCLES
     Route: 065
     Dates: start: 201808
  9. IFOSFAMIDE. [Concomitant]
     Active Substance: IFOSFAMIDE
     Dosage: UNK
  10. ETOPOSIDE. [Concomitant]
     Active Substance: ETOPOSIDE
     Dosage: UNK
  11. RITUXIMAB (UNKNOWN) [Suspect]
     Active Substance: RITUXIMAB
     Dosage: MONOTHERAPY 2 CYCLES, SOLUTION FOR 2 CYCLES, SOLUTION FOR INFUSION
     Route: 042
     Dates: start: 201808
  12. DOXORUBICIN [Concomitant]
     Active Substance: DOXORUBICIN
     Dosage: 6 CYCLES
     Route: 065
     Dates: start: 201808

REACTIONS (4)
  - Urinary retention [Unknown]
  - Pancytopenia [Unknown]
  - Drug ineffective [Unknown]
  - Hydronephrosis [Unknown]

NARRATIVE: CASE EVENT DATE: 20190403
